FAERS Safety Report 8919780 (Version 3)
Quarter: 2013Q1

REPORT INFORMATION
  Report Type: Spontaneous
  Country: US (occurrence: US)
  Receive Date: 20121121
  Receipt Date: 20130117
  Transmission Date: 20140127
  Serious: Yes (Hospitalization)
  Sender: FDA-Public Use
  Company Number: US-JNJFOC-20121104310

PATIENT
  Sex: Male
  Weight: 131.54 kg

DRUGS (6)
  1. DURAGESIC [Suspect]
     Indication: INTERVERTEBRAL DISC PROTRUSION
     Route: 062
  2. DURAGESIC [Suspect]
     Indication: INTERVERTEBRAL DISC PROTRUSION
     Route: 062
  3. DURAGESIC [Suspect]
     Indication: ILL-DEFINED DISORDER
     Route: 062
  4. DURAGESIC [Suspect]
     Indication: ILL-DEFINED DISORDER
     Route: 062
  5. AVINZA [Suspect]
     Indication: DRUG WITHDRAWAL MAINTENANCE THERAPY
     Route: 065
  6. MYLAN FENTANYL TRANSDERMAL SYSTEM [Suspect]
     Indication: PRODUCT USED FOR UNKNOWN INDICATION
     Route: 062

REACTIONS (12)
  - Convulsion [Recovered/Resolved]
  - Product quality issue [Unknown]
  - Withdrawal syndrome [Recovered/Resolved]
  - Gastrointestinal motility disorder [Recovered/Resolved]
  - Pain [Not Recovered/Not Resolved]
  - Product quality issue [Unknown]
  - Drug dose omission [Recovered/Resolved]
  - Micturition disorder [Recovered/Resolved]
  - Vomiting [Recovered/Resolved]
  - Wrong technique in drug usage process [Unknown]
  - Wrong technique in drug usage process [Unknown]
  - Abnormal behaviour [Unknown]
